FAERS Safety Report 12933206 (Version 1)
Quarter: 2016Q4

REPORT INFORMATION
  Report Type: Spontaneous
  Country: FR (occurrence: FR)
  Receive Date: 20161111
  Receipt Date: 20161111
  Transmission Date: 20170207
  Serious: Yes (Other)
  Sender: FDA-Public Use
  Company Number: FR-GLAXOSMITHKLINE-FR2016GSK163121

PATIENT
  Age: 79 Year
  Sex: Male

DRUGS (6)
  1. FLECAINE [Concomitant]
     Active Substance: FLECAINIDE
  2. PERMIXON [Concomitant]
     Active Substance: SAW PALMETTO
     Dosage: UNK
     Dates: start: 1986, end: 20161003
  3. TAMSULOSINE [Concomitant]
     Active Substance: TAMSULOSIN HYDROCHLORIDE
     Dosage: UNK
     Dates: start: 2004
  4. BISOPROLOL [Concomitant]
     Active Substance: BISOPROLOL
  5. AVODART [Suspect]
     Active Substance: DUTASTERIDE
     Indication: PRODUCT USED FOR UNKNOWN INDICATION
     Dosage: 0.5 MG, 1D
     Route: 048
     Dates: start: 20161003, end: 20161012
  6. FENOFIBRATE. [Concomitant]
     Active Substance: FENOFIBRATE

REACTIONS (3)
  - Headache [Recovered/Resolved]
  - Hypertension [Recovered/Resolved]
  - Dizziness [Recovered/Resolved]

NARRATIVE: CASE EVENT DATE: 201610
